FAERS Safety Report 9722810 (Version 1)
Quarter: 2013Q4

REPORT INFORMATION
  Report Type: Spontaneous
  Country: US (occurrence: None)
  Receive Date: 20131126
  Receipt Date: 20131126
  Transmission Date: 20140711
  Serious: Yes (Death, Other)
  Sender: FDA-Public Use
  Company Number: ADR-2013-02149

PATIENT
  Age: 51 Year
  Sex: Male
  Weight: 118.84 kg

DRUGS (1)
  1. BACLOFEN [Suspect]
     Indication: MUSCLE SPASTICITY
     Dosage: 399.7 MCG/DAY

REACTIONS (2)
  - Urosepsis [None]
  - Multiple sclerosis [None]
